FAERS Safety Report 7600980-7 (Version None)
Quarter: 2011Q3

REPORT INFORMATION
  Report Type: 
  Country: None (occurrence: None)
  Receive Date: 20110711
  Receipt Date: 20110615
  Transmission Date: 20111222
  Serious: Yes (Hospitalization)
  Sender: FDA-Public Use
  Company Number: US-GLAXOSMITHKLINE-A0806201A

PATIENT
  Age: 73 Year
  Sex: Male
  Weight: 70.9 kg

DRUGS (10)
  1. ALPRAZOLAM [Concomitant]
  2. GLUCOPHAGE [Concomitant]
  3. ASPIRIN [Concomitant]
  4. PAXIL [Concomitant]
  5. NEURONTIN [Concomitant]
  6. ZESTRIL [Concomitant]
  7. AVANDIA [Suspect]
     Indication: DIABETES MELLITUS
     Dosage: 8MG PER DAY
     Route: 048
     Dates: start: 19991102
  8. GLYBURIDE [Concomitant]
  9. ATENOLOL [Concomitant]
  10. VERPAMIL HCL [Concomitant]

REACTIONS (4)
  - SICK SINUS SYNDROME [None]
  - ATRIAL FIBRILLATION [None]
  - ACUTE MYOCARDIAL INFARCTION [None]
  - CARDIAC FAILURE CONGESTIVE [None]
